FAERS Safety Report 24130209 (Version 1)
Quarter: 2024Q3

REPORT INFORMATION
  Report Type: Spontaneous
  Country: US (occurrence: US)
  Receive Date: 20240724
  Receipt Date: 20240724
  Transmission Date: 20241017
  Serious: No
  Sender: STEMLINE THERAPEUTICS
  Company Number: US-Stemline Therapeutics, Inc.-2024ST003340

PATIENT
  Age: 77 Year
  Sex: Female

DRUGS (1)
  1. ORSERDU [Suspect]
     Active Substance: ELACESTRANT
     Indication: Product used for unknown indication
     Route: 048
     Dates: start: 20240127

REACTIONS (5)
  - Oropharyngeal pain [Unknown]
  - Lip pain [Unknown]
  - Diarrhoea [Unknown]
  - Rash macular [Unknown]
  - Fatigue [Unknown]
